FAERS Safety Report 18898749 (Version 1)
Quarter: 2021Q1

REPORT INFORMATION
  Report Type: Spontaneous
  Country: US (occurrence: US)
  Receive Date: 20210215
  Receipt Date: 20210215
  Transmission Date: 20210420
  Serious: No
  Sender: FDA-Public Use
  Company Number: None

PATIENT
  Age: 68 Year
  Sex: Female
  Weight: 83.25 kg

DRUGS (7)
  1. ADDERRAL?FOLIC ACID [Concomitant]
  2. TUMERIC [Concomitant]
     Active Substance: HERBALS\TURMERIC
  3. TOPAMAX [Concomitant]
     Active Substance: TOPIRAMATE
  4. VIT D [Concomitant]
     Active Substance: VITAMIN D NOS
  5. MULTIVITAMIN [Concomitant]
     Active Substance: VITAMINS
  6. PRILOSEC [Concomitant]
     Active Substance: OMEPRAZOLE MAGNESIUM
  7. TRELEGY ELLIPTA [Suspect]
     Active Substance: FLUTICASONE FUROATE\UMECLIDINIUM BROMIDE\VILANTEROL TRIFENATATE
     Indication: ASTHMA
     Route: 055
     Dates: end: 20210210

REACTIONS (1)
  - Pneumonia [None]

NARRATIVE: CASE EVENT DATE: 20210211
